FAERS Safety Report 16341885 (Version 1)
Quarter: 2019Q3

REPORT INFORMATION
  Report Type: Spontaneous
  Country: US (occurrence: US)
  Receive Date: 20190521
  Receipt Date: 20190521
  Transmission Date: 20191004
  Serious: Yes (Disabling, Other)
  Sender: FDA-Public Use
  Company Number: None

PATIENT
  Age: 65 Year
  Sex: Male
  Weight: 78.75 kg

DRUGS (6)
  1. ALLEGRA [Concomitant]
     Active Substance: FEXOFENADINE HYDROCHLORIDE
  2. ZYRTEC-D [Concomitant]
     Active Substance: CETIRIZINE HYDROCHLORIDE\PSEUDOEPHEDRINE HYDROCHLORIDE
  3. GEMFIBRIZOL [Concomitant]
  4. DR. KING^S NATURAL MEDICINE GOUT SYMPTOM FORMULA [Suspect]
     Active Substance: HOMEOPATHICS
     Indication: GOUT
     Dosage: 3 SPRAYS 3 TIMES A DAY; ORAL
     Route: 048
     Dates: start: 20180415, end: 20180817
  5. ALLOPURINOL. [Concomitant]
     Active Substance: ALLOPURINOL
  6. TRAMADOL. [Concomitant]
     Active Substance: TRAMADOL

REACTIONS (5)
  - Product contamination microbial [None]
  - Skin discolouration [None]
  - Recalled product administered [None]
  - Application site cellulitis [None]
  - Gangrene [None]

NARRATIVE: CASE EVENT DATE: 20180502
